FAERS Safety Report 7629191-6 (Version None)
Quarter: 2011Q3

REPORT INFORMATION
  Report Type: 
  Country: None (occurrence: None)
  Receive Date: 20110722
  Receipt Date: 20110711
  Transmission Date: 20111222
  Serious: Yes (Other)
  Sender: FDA-Public Use
  Company Number: PHHY2009GB04799

PATIENT
  Sex: Female

DRUGS (9)
  1. CITALOPRAM HYDROBROMIDE [Concomitant]
     Indication: DEPRESSION
     Dosage: 60 MG DAILY
     Route: 048
  2. DIPYRIDAMOLE [Concomitant]
     Indication: PROPHYLAXIS
     Route: 048
  3. CLOZAPINE [Suspect]
     Indication: SCHIZOPHRENIA
     Dosage: 900 MG, QD
     Route: 048
     Dates: start: 19960411
  4. SULPIRIDE [Concomitant]
     Dosage: 200 MG DAILY
     Route: 048
  5. METFORMIN HCL [Concomitant]
     Indication: DIABETES MELLITUS
     Dosage: 500 MG, BID
     Route: 048
  6. ASPIRIN [Concomitant]
     Route: 065
  7. INSULIN [Concomitant]
     Indication: DIABETES MELLITUS
     Dosage: UNK
     Route: 058
  8. OXYCODONE HCL [Concomitant]
     Indication: ANALGESIC THERAPY
     Route: 048
  9. CLOZAPINE [Suspect]
     Dosage: 750 MG, QD
     Route: 048
     Dates: start: 20080101

REACTIONS (7)
  - GENERAL PHYSICAL HEALTH DETERIORATION [None]
  - RED BLOOD CELL COUNT DECREASED [None]
  - ASTHENIA [None]
  - HAEMOGLOBIN DECREASED [None]
  - PLATELET COUNT DECREASED [None]
  - CEREBROVASCULAR ACCIDENT [None]
  - LUNG NEOPLASM MALIGNANT [None]
